FAERS Safety Report 8064411-8 (Version None)
Quarter: 2012Q1

REPORT INFORMATION
  Report Type: 
  Country: None (occurrence: None)
  Receive Date: 20120123
  Receipt Date: 20120109
  Transmission Date: 20120608
  Serious: Yes (Other)
  Sender: FDA-Public Use
  Company Number: US-ENDO PHARMACEUTICALS INC.-PERC20120004

PATIENT
  Sex: Male

DRUGS (3)
  1. PERCOCET [Suspect]
     Indication: PAIN
     Dosage: 40/2600 MG
     Route: 048
     Dates: start: 20100610
  2. PERCOCET [Suspect]
     Indication: PAIN
     Dosage: 5/325 MG
     Route: 048
     Dates: start: 20100601
  3. PERCOCET [Suspect]
     Dosage: 15/975 MG
     Route: 048
     Dates: start: 20120101

REACTIONS (1)
  - CEREBROVASCULAR ACCIDENT [None]
